FAERS Safety Report 12137450 (Version 1)
Quarter: 2016Q1

REPORT INFORMATION
  Report Type: Spontaneous
  Country: JP (occurrence: JP)
  Receive Date: 20160302
  Receipt Date: 20160302
  Transmission Date: 20160526
  Serious: Yes (Death, Other)
  Sender: FDA-Public Use
  Company Number: JP-PFIZER INC-2016122637

PATIENT
  Age: 55 Year
  Sex: Female

DRUGS (1)
  1. ALDACTONE A [Suspect]
     Active Substance: SPIRONOLACTONE
     Dosage: UNK
     Route: 048
     Dates: start: 201503, end: 201503

REACTIONS (2)
  - Multiple organ dysfunction syndrome [Fatal]
  - Toxic epidermal necrolysis [Fatal]
